FAERS Safety Report 11340026 (Version 1)
Quarter: 2015Q3

REPORT INFORMATION
  Report Type: Spontaneous
  Country: US (occurrence: None)
  Receive Date: 20150803
  Receipt Date: 20150803
  Transmission Date: 20151125
  Serious: Yes (Death, Hospitalization)
  Sender: FDA-Public Use
  Company Number: IPC201507-000486

PATIENT
  Age: 43 Year
  Sex: Female
  Weight: 63 kg

DRUGS (4)
  1. TRAMADOL (TRAMADOL) (TRAMADOL) [Suspect]
     Active Substance: TRAMADOL
  2. ZOLPIDEM TARTRATE (ZOLPIDEM TARTRATE) (ZOLPIDEM TARTRATE) [Suspect]
     Active Substance: ZOLPIDEM TARTRATE
  3. ALPRAZOLAM (ALPRAZOLAM) (ALPRAZOLAM) [Concomitant]
     Active Substance: ALPRAZOLAM
  4. PROPRANOLOL HYDROCHLORIDE. [Suspect]
     Active Substance: PROPRANOLOL HYDROCHLORIDE

REACTIONS (6)
  - Hypotension [None]
  - Cardiac arrest [None]
  - Ventricular hypokinesia [None]
  - Toxicity to various agents [None]
  - Overdose [None]
  - Cardiogenic shock [None]
